FAERS Safety Report 24788159 (Version 1)
Quarter: 2024Q4

REPORT INFORMATION
  Report Type: Spontaneous
  Country: US (occurrence: US)
  Receive Date: 20241230
  Receipt Date: 20241230
  Transmission Date: 20250115
  Serious: Yes (Hospitalization)
  Sender: CHIESI
  Company Number: US-CHIESI-2024CHF08348

PATIENT
  Sex: Female
  Weight: 35.514 kg

DRUGS (8)
  1. MYALEPT [Suspect]
     Active Substance: METRELEPTIN
     Indication: Product used for unknown indication
     Dosage: 2.1 MILLIGRAM, QD
     Route: 058
  2. BACTERIOSTATIC WATER [Concomitant]
     Active Substance: WATER
     Indication: Product used for unknown indication
     Dosage: UNK
  3. TAMIFLU [Concomitant]
     Active Substance: OSELTAMIVIR PHOSPHATE
     Indication: Product used for unknown indication
     Dosage: UNK
  4. Viactiv [Concomitant]
     Indication: Product used for unknown indication
     Dosage: UNK
  5. LACTOBACILLUS ACIDOPHILUS [Concomitant]
     Active Substance: LACTOBACILLUS ACIDOPHILUS
     Indication: Product used for unknown indication
     Dosage: UNK
  6. VITAMINS [Concomitant]
     Active Substance: VITAMINS
     Indication: Product used for unknown indication
     Dosage: UNK
  7. MIRALAX [Concomitant]
     Active Substance: POLYETHYLENE GLYCOL 3350
     Indication: Product used for unknown indication
     Dosage: UNK
  8. Provimin [Concomitant]
     Indication: Product used for unknown indication
     Dosage: UNK

REACTIONS (1)
  - Pneumonia [Unknown]
